FAERS Safety Report 18361237 (Version 1)
Quarter: 2020Q4

REPORT INFORMATION
  Report Type: Spontaneous
  Country: AU (occurrence: AU)
  Receive Date: 20201008
  Receipt Date: 20201008
  Transmission Date: 20210114
  Serious: Yes (Hospitalization)
  Sender: FDA-Public Use
  Company Number: NVSC2020AU255907

PATIENT
  Age: 77 Year
  Sex: Female

DRUGS (2)
  1. EZETIMIBE SANDOZ [Suspect]
     Active Substance: EZETIMIBE
     Indication: CEREBROVASCULAR ACCIDENT
     Dosage: 10 MG, QD
     Route: 065
  2. ATORVASTATIN [Suspect]
     Active Substance: ATORVASTATIN
     Indication: PRODUCT USED FOR UNKNOWN INDICATION
     Dosage: UNK
     Route: 065

REACTIONS (4)
  - Transient ischaemic attack [Unknown]
  - Skin exfoliation [Unknown]
  - Myalgia [Unknown]
  - Pain of skin [Unknown]
